FAERS Safety Report 9850954 (Version 4)
Quarter: 2014Q1

REPORT INFORMATION
  Report Type: Report from Study
  Country: US (occurrence: US)
  Receive Date: 20140128
  Receipt Date: 20140214
  Transmission Date: 20141002
  Serious: Yes (Hospitalization)
  Sender: FDA-Public Use
  Company Number: US-ACTELION-A-US2014-93594

PATIENT
  Age: 62 Year
  Sex: Female

DRUGS (3)
  1. VELETRI [Suspect]
     Indication: COR PULMONALE CHRONIC
     Dosage: 28 UNK, UNK
     Route: 042
     Dates: start: 20130613
  2. OPSUMIT [Suspect]
     Dosage: 10 MG, QD
     Route: 048
  3. COUMADIN [Concomitant]
     Dosage: 5 MG, QD

REACTIONS (3)
  - Dyspnoea [Unknown]
  - Fluid retention [Unknown]
  - Chest pain [Unknown]
